FAERS Safety Report 10586256 (Version 3)
Quarter: 2015Q2

REPORT INFORMATION
  Report Type: Spontaneous
  Country: US (occurrence: US)
  Receive Date: 20141117
  Receipt Date: 20150513
  Transmission Date: 20150821
  Serious: No
  Sender: FDA-Public Use
  Company Number: US-DRREDDYS-USA/USA/14/0043034

PATIENT
  Age: 67 Year
  Sex: Female
  Weight: 70.76 kg

DRUGS (4)
  1. FAMOTIDINE OTC [Suspect]
     Active Substance: FAMOTIDINE
     Indication: PRODUCT USED FOR UNKNOWN INDICATION
     Route: 048
     Dates: start: 20140820, end: 20140826
  2. SYNTHROID [Concomitant]
     Active Substance: LEVOTHYROXINE SODIUM
     Indication: PRODUCT USED FOR UNKNOWN INDICATION
     Route: 065
  3. TUMS [Concomitant]
     Active Substance: CALCIUM CARBONATE
     Indication: PRODUCT USED FOR UNKNOWN INDICATION
     Route: 065
  4. RANITIDINE TABLETS 75 MG [Suspect]
     Active Substance: RANITIDINE\RANITIDINE HYDROCHLORIDE
     Indication: GASTROOESOPHAGEAL REFLUX DISEASE
     Route: 048
     Dates: start: 20140901, end: 20140906

REACTIONS (4)
  - Drug ineffective [Unknown]
  - Product quality issue [Unknown]
  - Dizziness [Recovered/Resolved]
  - Abdominal discomfort [Unknown]

NARRATIVE: CASE EVENT DATE: 20140903
